FAERS Safety Report 7381796-6 (Version None)
Quarter: 2011Q1

REPORT INFORMATION
  Report Type: 
  Country: None (occurrence: None)
  Receive Date: 20110329
  Receipt Date: 20110324
  Transmission Date: 20110831
  Serious: Yes (Other)
  Sender: FDA-Public Use
  Company Number: DE-TEVA-272915GER

PATIENT
  Age: 0 Year
  Sex: Female
  Weight: 2.97 kg

DRUGS (3)
  1. FOLIO FORTE [Concomitant]
     Route: 064
     Dates: end: 20100712
  2. LEVOTHYROXINE SODIUM [Concomitant]
     Route: 064
     Dates: end: 20101107
  3. CITALOPRAM HYDROBROMIDE [Suspect]
     Route: 064
     Dates: start: 20100119, end: 20101107

REACTIONS (1)
  - SMALL FOR DATES BABY [None]
